FAERS Safety Report 10078742 (Version 1)
Quarter: 2014Q2

REPORT INFORMATION
  Report Type: Spontaneous
  Country: US (occurrence: None)
  Receive Date: 20140414
  Receipt Date: 20140414
  Transmission Date: 20141212
  Serious: No
  Sender: FDA-Public Use
  Company Number: None

PATIENT
  Age: 61 Year
  Sex: Male

DRUGS (1)
  1. ZYTIGA 250MG JANSSEN BIOTECH, INC. [Suspect]
     Indication: PROSTATE CANCER
     Route: 048
     Dates: start: 20120816, end: 20140410

REACTIONS (2)
  - Drug ineffective [None]
  - Prostatic specific antigen increased [None]
